FAERS Safety Report 8078672-2 (Version None)
Quarter: 2012Q1

REPORT INFORMATION
  Report Type: 
  Country: None (occurrence: None)
  Receive Date: 20120127
  Receipt Date: 20110103
  Transmission Date: 20120608
  Serious: No
  Sender: FDA-Public Use
  Company Number: US-ABBOTT-11P-163-0695189-00

PATIENT
  Sex: Male

DRUGS (8)
  1. PREDNISONE [Concomitant]
     Indication: ANKYLOSING SPONDYLITIS
     Dosage: TAPER
  2. HUMIRA [Suspect]
     Indication: ANKYLOSING SPONDYLITIS
     Route: 058
  3. OXYCONTIN [Concomitant]
     Indication: ANKYLOSING SPONDYLITIS
  4. HYDROCODONE [Concomitant]
     Indication: BREAKTHROUGH PAIN
  5. CITALOPRAM HYDROBROMIDE [Concomitant]
     Indication: DEPRESSION
  6. METHOTREXATE [Concomitant]
     Indication: ANKYLOSING SPONDYLITIS
  7. ALPRAZOLAM [Concomitant]
     Indication: ANXIETY
  8. ZOLPIDEM TARTRATE [Concomitant]
     Indication: INSOMNIA

REACTIONS (6)
  - SKIN ULCER [None]
  - DEVICE MALFUNCTION [None]
  - BLOOD GLUCOSE DECREASED [None]
  - WRONG TECHNIQUE IN DRUG USAGE PROCESS [None]
  - INJECTION SITE PAIN [None]
  - TREMOR [None]
